FAERS Safety Report 21347164 (Version 1)
Quarter: 2022Q3

REPORT INFORMATION
  Report Type: Spontaneous
  Country: GR (occurrence: GR)
  Receive Date: 20220919
  Receipt Date: 20220919
  Transmission Date: 20221026
  Serious: Yes (Hospitalization)
  Sender: FDA-Public Use
  Company Number: None

PATIENT
  Age: 43 Year
  Sex: Male
  Weight: 78 kg

DRUGS (3)
  1. REBLOZYL [Suspect]
     Active Substance: LUSPATERCEPT-AAMT
     Indication: Thalassaemia beta
     Dosage: 1.25 MG/KG EVERY 21 DAYS
     Route: 058
     Dates: start: 20211206
  2. DIUREN [FUROSEMIDE] [Concomitant]
     Indication: Product used for unknown indication
     Dosage: 19 MG X 1
     Route: 048
     Dates: start: 20200901
  3. EXJADE [Concomitant]
     Active Substance: DEFERASIROX
     Indication: Overchelation
     Dosage: 17 MG/KG X 1
     Route: 048
     Dates: start: 20070313

REACTIONS (1)
  - Sciatica [Not Recovered/Not Resolved]

NARRATIVE: CASE EVENT DATE: 20220405
